FAERS Safety Report 24182369 (Version 1)
Quarter: 2024Q3

REPORT INFORMATION
  Report Type: Spontaneous
  Country: US (occurrence: US)
  Receive Date: 20240807
  Receipt Date: 20240807
  Transmission Date: 20241017
  Serious: No
  Sender: GLAXOSMITHKLINE
  Company Number: US-GSKCCFUS-Case-02066851_AE-114355

PATIENT
  Sex: Female

DRUGS (1)
  1. NUCALA [Suspect]
     Active Substance: MEPOLIZUMAB
     Indication: Nasal polyps
     Dosage: UNK

REACTIONS (5)
  - Peripheral swelling [Unknown]
  - Sinus operation [Unknown]
  - Eye infection [Unknown]
  - Swelling face [Unknown]
  - Nasal congestion [Unknown]
